FAERS Safety Report 17642750 (Version 1)
Quarter: 2020Q2

REPORT INFORMATION
  Report Type: Spontaneous
  Country: US (occurrence: US)
  Receive Date: 20200408
  Receipt Date: 20200408
  Transmission Date: 20200713
  Serious: No
  Sender: FDA-Public Use
  Company Number: US-ALLERGAN-1929533US

PATIENT
  Age: 37 Year
  Sex: Female

DRUGS (5)
  1. LILETTA [Suspect]
     Active Substance: LEVONORGESTREL
     Indication: DYSMENORRHOEA
  2. LILETTA [Suspect]
     Active Substance: LEVONORGESTREL
     Indication: ADENOMYOSIS
  3. LILETTA [Suspect]
     Active Substance: LEVONORGESTREL
     Indication: MENORRHAGIA
     Dosage: 52 MG, SINGLE
     Route: 015
     Dates: start: 20190606, end: 20190724
  4. LILETTA [Suspect]
     Active Substance: LEVONORGESTREL
     Indication: POLYP
  5. LILETTA [Suspect]
     Active Substance: LEVONORGESTREL
     Indication: ENDOMETRIAL HYPERPLASIA

REACTIONS (4)
  - Off label use [Unknown]
  - Device expulsion [Recovered/Resolved]
  - Pyrexia [Unknown]
  - Back pain [Unknown]

NARRATIVE: CASE EVENT DATE: 201907
